FAERS Safety Report 7817567-3 (Version None)
Quarter: 2011Q4

REPORT INFORMATION
  Report Type: 
  Country: None (occurrence: None)
  Receive Date: 20111017
  Receipt Date: 20111004
  Transmission Date: 20120403
  Serious: Yes (Other)
  Sender: FDA-Public Use
  Company Number: PHHY2011JP88318

PATIENT
  Age: 83 Year
  Sex: Male

DRUGS (4)
  1. MICARDIS [Concomitant]
     Dosage: 40 MG, UNK
     Route: 048
  2. ARICEPT [Concomitant]
     Dosage: 5 MG, UNK
     Route: 048
  3. TEGRETOL [Suspect]
     Indication: AGITATION
     Dosage: 2 DF, BID
     Route: 048
     Dates: start: 20110915, end: 20110901
  4. LASIX [Concomitant]
     Dosage: 20 MG, UNK

REACTIONS (5)
  - HYPOKINESIA [None]
  - PYREXIA [None]
  - DRUG LEVEL INCREASED [None]
  - LIMB DISCOMFORT [None]
  - DYSSTASIA [None]
